FAERS Safety Report 8160753-6 (Version None)
Quarter: 2012Q1

REPORT INFORMATION
  Report Type: 
  Country: None (occurrence: None)
  Receive Date: 20120223
  Receipt Date: 20120214
  Transmission Date: 20120608
  Serious: Yes (Hospitalization)
  Sender: FDA-Public Use
  Company Number: PHHY2011JP64195

PATIENT
  Sex: Female
  Weight: 77 kg

DRUGS (3)
  1. PHENOBARBITAL TAB [Suspect]
     Indication: INFANTILE SPASMS
     Dosage: 140 MG, UNK
     Route: 048
  2. DEPAKENE [Suspect]
     Indication: INFANTILE SPASMS
     Dosage: 1400 MG, UNK
     Route: 048
     Dates: end: 20100317
  3. TEGRETOL [Suspect]
     Indication: INFANTILE SPASMS
     Dosage: 1200 MG, UNK
     Route: 048

REACTIONS (1)
  - MATERNAL EXPOSURE DURING PREGNANCY [None]
